FAERS Safety Report 7700070-9 (Version None)
Quarter: 2011Q3

REPORT INFORMATION
  Report Type: 
  Country: None (occurrence: None)
  Receive Date: 20110822
  Receipt Date: 20110811
  Transmission Date: 20111222
  Serious: Yes (Death)
  Sender: FDA-Public Use
  Company Number: MY-GENZYME-CLOF-1001673

PATIENT
  Sex: Female

DRUGS (8)
  1. ETOPOSIDE [Suspect]
     Indication: ACUTE LYMPHOCYTIC LEUKAEMIA
     Dosage: 100 MG/M2 INFUSED OVER 2 HRS, DAYS 1-5, CYCLE 1
     Route: 042
     Dates: start: 20091117, end: 20100116
  2. CYCLOPHOSPHAMIDE [Suspect]
     Dosage: 440 MG/M2 INFUSED OVER 1 HR ON DAYS 1-5, CYCLE 2
     Route: 042
     Dates: start: 20091117, end: 20100111
  3. ETOPOSIDE [Suspect]
     Dosage: 100 MG/M2 INFUSED OVER 2 HRS, DAYS 1-5, CYCLE 2
     Route: 042
     Dates: start: 20091117, end: 20100116
  4. METHYLPREDNISOLONE [Concomitant]
     Indication: PREMEDICATION
     Dosage: 0.5 MG/KG, QD
     Route: 042
  5. CLOFARABINE [Suspect]
     Dosage: 40 MG/M2 INFUSED OVER 2 HRS ON DAYS 1-5, CYCLE 2
     Route: 042
     Dates: start: 20091117, end: 20100116
  6. CLOFARABINE [Suspect]
     Indication: ACUTE LYMPHOCYTIC LEUKAEMIA
     Dosage: 40 MG/M2 INFUSED OVER 2 HRS ON DAYS 1-5, CYCLE 1
     Route: 042
     Dates: start: 20091117, end: 20100116
  7. CYCLOPHOSPHAMIDE [Suspect]
     Indication: ACUTE LYMPHOCYTIC LEUKAEMIA
     Dosage: 440 MG/M2 INFUSED OVER 1 HR ON DAYS 1-5, CYCLE 1
     Route: 042
     Dates: start: 20091117, end: 20100111
  8. MESNA [Concomitant]
     Indication: PREMEDICATION
     Dosage: 180 MG/M2 TID AT 0, 4 AND 8 HRS PRE-CYCLOPHOSPHAMIDE
     Route: 042

REACTIONS (1)
  - GRAFT VERSUS HOST DISEASE [None]
